FAERS Safety Report 6603000-6 (Version None)
Quarter: 2010Q1

REPORT INFORMATION
  Report Type: 
  Country: None (occurrence: None)
  Receive Date: 20100226
  Receipt Date: 20100217
  Transmission Date: 20100710
  Serious: Yes (Hospitalization, Other)
  Sender: FDA-Public Use
  Company Number: US-ASTRAZENECA-2009SE30482

PATIENT
  Age: 26535 Day
  Sex: Female

DRUGS (6)
  1. ARIMIDEX [Suspect]
     Indication: BREAST CANCER
     Route: 048
     Dates: start: 20070101
  2. FASLODEX [Suspect]
     Indication: METASTASES TO LUNG
     Dosage: 250 MG PER 5 ML
     Route: 030
     Dates: start: 20091001
  3. FASLODEX [Suspect]
     Indication: BREAST CANCER METASTATIC
     Dosage: 250 MG PER 5 ML
     Route: 030
     Dates: start: 20091001
  4. ENALAPRIL MALEATE [Concomitant]
  5. CALCIUM [Concomitant]
  6. MULTI-VITAMIN [Concomitant]

REACTIONS (14)
  - ASTHENIA [None]
  - DIARRHOEA [None]
  - FALL [None]
  - FEMUR FRACTURE [None]
  - GASTROINTESTINAL HAEMORRHAGE [None]
  - HIP ARTHROPLASTY [None]
  - HIP FRACTURE [None]
  - HYPERHIDROSIS [None]
  - INJECTION SITE PAIN [None]
  - LUNG DISORDER [None]
  - MEDICAL DEVICE REMOVAL [None]
  - MOVEMENT DISORDER [None]
  - ROAD TRAFFIC ACCIDENT [None]
  - UPPER LIMB FRACTURE [None]
